FAERS Safety Report 15263175 (Version 1)
Quarter: 2018Q3

REPORT INFORMATION
  Report Type: Spontaneous
  Country: BE (occurrence: BE)
  Receive Date: 20180810
  Receipt Date: 20180810
  Transmission Date: 20181010
  Serious: Yes (Other)
  Sender: FDA-Public Use
  Company Number: BE-TEVA-2018-BE-936720

PATIENT
  Sex: Female

DRUGS (4)
  1. LEUCOVORIN. [Suspect]
     Active Substance: LEUCOVORIN
     Route: 042
  2. FLUOROURACIL. [Suspect]
     Active Substance: FLUOROURACIL
     Route: 042
  3. IRINOTECAN [Suspect]
     Active Substance: IRINOTECAN
     Route: 042
  4. ZALTRAP [Suspect]
     Active Substance: ZIV-AFLIBERCEPT
     Route: 042

REACTIONS (1)
  - Atrial thrombosis [Recovering/Resolving]
